FAERS Safety Report 5878640-2 (Version None)
Quarter: 2008Q3

REPORT INFORMATION
  Report Type: 
  Country: None (occurrence: None)
  Receive Date: 20080909
  Receipt Date: 20080825
  Transmission Date: 20090109
  Serious: Yes (Hospitalization)
  Sender: FDA-Public Use
  Company Number: 100#08#2008-04470

PATIENT
  Age: 33 Year
  Sex: Male

DRUGS (17)
  1. CO-TRIMOXAZOLE (TRIMETHOPRIM, SULFAMETNOXAZOLE) [Suspect]
     Indication: DRUG USE FOR UNKNOWN INDICATION
  2. CEFTAZIDIME [Suspect]
     Indication: ANTIBIOTIC THERAPY
  3. CIPROFLOXACIN [Suspect]
     Indication: DRUG USE FOR UNKNOWN INDICATION
  4. FLUCONAZOLE [Suspect]
     Indication: ANTIBIOTIC THERAPY
  5. LANSOPRAZOLE [Suspect]
     Indication: DRUG USE FOR UNKNOWN INDICATION
  6. BASILIXIMAB (BASILIXIMAB) [Suspect]
     Indication: IMMUNOSUPPRESSION
  7. TACROLIMUS [Suspect]
     Indication: IMMUNOSUPPRESSION
  8. MYCOPHENOLATE MOFETIL [Suspect]
     Indication: IMMUNOSUPPRESSION
  9. PREDNISONE [Suspect]
     Indication: IMMUNOSUPPRESSION
     Dosage: 10 MG DAILY
  10. METRONIDAZOLE [Suspect]
     Indication: ANTIBIOTIC THERAPY
  11. MEROPENEM (MEROPENEN) [Suspect]
     Indication: INFECTION
  12. VANCOMYCIN [Suspect]
     Indication: INFECTION
  13. FILGRASTIM (FILGRASTIM) [Suspect]
     Indication: DRUG USE FOR UNKNOWN INDICATION
  14. CASPOFUNGIN (CASPOFUNGIN) [Suspect]
     Indication: DRUG USE FOR UNKNOWN INDICATION
  15. ANTIBACTERIAL (UNKNOWN) [Suspect]
     Indication: DRUG USE FOR UNKNOWN INDICATION
  16. ANTIFUNGAL (UNKNOWN) [Suspect]
     Indication: DRUG USE FOR UNKNOWN INDICATION
  17. CYCLOSPORINE [Suspect]

REACTIONS (4)
  - BACTERIAL INFECTION [None]
  - PLEURAL EFFUSION [None]
  - PLEURISY [None]
  - RENAL FAILURE [None]
